FAERS Safety Report 6109476-5 (Version None)
Quarter: 2009Q1

REPORT INFORMATION
  Report Type: 
  Country: None (occurrence: None)
  Receive Date: 20090310
  Receipt Date: 20090305
  Transmission Date: 20090719
  Serious: Yes (Other)
  Sender: FDA-Public Use
  Company Number: US-WYE-H03990608

PATIENT
  Sex: Male
  Weight: 78.54 kg

DRUGS (1)
  1. TEMSIROLIMUS [Suspect]
     Indication: RENAL CELL CARCINOMA
     Dates: start: 20040429

REACTIONS (1)
  - SQUAMOUS CELL CARCINOMA [None]
